FAERS Safety Report 25989789 (Version 2)
Quarter: 2025Q4

REPORT INFORMATION
  Report Type: Spontaneous
  Country: EG (occurrence: EG)
  Receive Date: 20251103
  Receipt Date: 20251118
  Transmission Date: 20260117
  Serious: Yes (Life-Threatening, Other)
  Sender: NOVO NORDISK
  Company Number: EG-NOVOPROD-1547201

PATIENT
  Age: 626 Month
  Sex: Male
  Weight: 115 kg

DRUGS (4)
  1. INSULIN HUMAN [Suspect]
     Active Substance: INSULIN HUMAN
     Indication: Diabetes mellitus
     Dosage: 80 IU, QD (50 IU MOTNING, 30 IU NIGHT)
     Route: 058
     Dates: start: 2011
  2. INSULIN HUMAN [Suspect]
     Active Substance: INSULIN HUMAN
     Dosage: 60 IU, QD (40 U AT MORNING/20 U AT NIGHT)
     Route: 058
  3. ANTODINE [CALCIUM CARBONATE;FAMOTIDINE;MAGNESIUM HYDROXIDE] [Concomitant]
     Indication: Dyspepsia
     Dosage: ONCE DAILY
     Route: 048
  4. BENFOTIAMINE\CYANOCOBALAMIN\PYRIDOXINE HYDROCHLORIDE [Concomitant]
     Active Substance: BENFOTIAMINE\CYANOCOBALAMIN\PYRIDOXINE HYDROCHLORIDE
     Indication: Product used for unknown indication
     Dosage: UNK

REACTIONS (8)
  - Tachycardia [Recovered/Resolved]
  - Angina pectoris [Recovered/Resolved]
  - Enzyme level increased [Not Recovered/Not Resolved]
  - Spinal column injury [Not Recovered/Not Resolved]
  - Osteoarthritis [Not Recovered/Not Resolved]
  - Dyspepsia [Not Recovered/Not Resolved]
  - Hyperglycaemia [Not Recovered/Not Resolved]
  - Hypoglycaemia [Not Recovered/Not Resolved]
